FAERS Safety Report 5771800-0 (Version None)
Quarter: 2008Q2

REPORT INFORMATION
  Report Type: 
  Country: None (occurrence: None)
  Receive Date: 20080601
  Receipt Date: 20080228
  Transmission Date: 20081010
  Serious: No
  Sender: FDA-Public Use
  Company Number: US200802006932

PATIENT
  Age: 66 Year
  Sex: Female
  Weight: 86.6 kg

DRUGS (1)
  1. BYETTA [Suspect]
     Indication: INSULIN RESISTANCE
     Dosage: 5 UG, 2/D, SUBCUTANEOUS
     Route: 058
     Dates: start: 20080201

REACTIONS (3)
  - FEELING HOT [None]
  - NAUSEA [None]
  - WEIGHT DECREASED [None]
